FAERS Safety Report 5481956-5 (Version None)
Quarter: 2007Q4

REPORT INFORMATION
  Report Type: 
  Country: None (occurrence: None)
  Receive Date: 20071005
  Receipt Date: 20071001
  Transmission Date: 20080405
  Serious: Yes (Hospitalization)
  Sender: FDA-Public Use
  Company Number: 17586

PATIENT

DRUGS (3)
  1. LEUCOVORIN [Suspect]
     Indication: DRUG USE FOR UNKNOWN INDICATION
  2. FLUOROURACIL [Suspect]
     Indication: DRUG USE FOR UNKNOWN INDICATION
  3. OXALIPLATIN [Suspect]
     Indication: DRUG USE FOR UNKNOWN INDICATION

REACTIONS (2)
  - ABDOMINAL PAIN [None]
  - CEREBROVASCULAR ACCIDENT [None]
